FAERS Safety Report 4370728-0 (Version None)
Quarter: 2004Q2

REPORT INFORMATION
  Report Type: 
  Country: None (occurrence: None)
  Receive Date: 20040602
  Receipt Date: 20040602
  Transmission Date: 20050107
  Serious: Yes (Hospitalization)
  Sender: FDA-Public Use
  Company Number: None

PATIENT
  Sex: Male

DRUGS (6)
  1. SIMVASTATIN [Suspect]
     Indication: HYPERLIPIDAEMIA
     Dosage: 40MG DAILY ORAL
     Route: 048
     Dates: start: 20040414, end: 20040508
  2. ASPIRIN [Concomitant]
  3. LORAZEPAM [Concomitant]
  4. QUENTIAPINE [Concomitant]
  5. RISPERIDONE [Concomitant]
  6. ROSIGLITAZONE MALEATE [Concomitant]

REACTIONS (1)
  - BLOOD CREATINE PHOSPHOKINASE INCREASED [None]
